FAERS Safety Report 17106653 (Version 1)
Quarter: 2019Q4

REPORT INFORMATION
  Report Type: Spontaneous
  Country: DK (occurrence: DK)
  Receive Date: 20191203
  Receipt Date: 20191203
  Transmission Date: 20200122
  Serious: Yes (Hospitalization)
  Sender: FDA-Public Use
  Company Number: DK-ELI_LILLY_AND_COMPANY-DK201911011326

PATIENT
  Age: 20 Year
  Sex: Female

DRUGS (7)
  1. AGOMELATINE [Concomitant]
     Active Substance: AGOMELATINE
     Indication: DEPRESSION
     Dosage: STYRKE: 25 MG.
     Route: 048
     Dates: start: 20151021, end: 20190808
  2. DULOXETINE HYDROCHLORIDE. [Suspect]
     Active Substance: DULOXETINE HYDROCHLORIDE
     Indication: ANTIDEPRESSANT THERAPY
     Dosage: UNK UNK, UNKNOWN
     Route: 048
     Dates: start: 2015
  3. ONDANSETRON [Concomitant]
     Active Substance: ONDANSETRON
     Indication: NAUSEA
     Dosage: UNK, UNKNOWN
     Route: 065
  4. TRAMADOL. [Concomitant]
     Active Substance: TRAMADOL
     Indication: PAIN
     Dosage: STYRKE: 50 MG DOSIS: 50 MG. EFTER BEHOV, DOG MAX. 6X DGL.
     Route: 048
     Dates: start: 20180216, end: 20180528
  5. PARACETAMOL [Concomitant]
     Active Substance: ACETAMINOPHEN
     Indication: PAIN
     Dosage: STYRKE: 500 MG DOSIS: 1000 MG EFTER BEHOV, DOG MAX. 1X DGL.
     Route: 048
  6. DROSPIRENONE;ETHINYLESTRADIOL [Concomitant]
     Active Substance: DROSPIRENONE\ETHINYL ESTRADIOL
     Indication: CONTRACEPTION
     Dosage: STYRKE: 3 MG + 20 MIKROGRAM.
     Route: 048
     Dates: start: 20150422
  7. QUETIAPINE. [Concomitant]
     Active Substance: QUETIAPINE
     Indication: DEPRESSION
     Dosage: UNK, UNKNOWN
     Route: 048
     Dates: start: 20180111, end: 20180216

REACTIONS (4)
  - Pancreatitis [Recovered/Resolved]
  - Amylase increased [Recovered/Resolved]
  - Abdominal pain [Not Recovered/Not Resolved]
  - Pancreatitis [Recovered/Resolved]

NARRATIVE: CASE EVENT DATE: 20151118
